FAERS Safety Report 8834686 (Version 2)
Quarter: 2012Q4

REPORT INFORMATION
  Report Type: Report from Study
  Country: US (occurrence: US)
  Receive Date: 20121010
  Receipt Date: 20121120
  Transmission Date: 20130627
  Serious: Yes (Hospitalization, Other)
  Sender: FDA-Public Use
  Company Number: US-TEVA-363575USA

PATIENT
  Age: 56 Year
  Sex: Female
  Weight: 91.8 kg

DRUGS (21)
  1. DOXORUBICIN [Suspect]
     Indication: SARCOMA METASTATIC
     Dosage: cyclic.
     Dates: start: 20120705, end: 20120705
  2. DOXORUBICIN [Suspect]
     Dosage: Cycle #4, 56.25 mg/m2/116 mg
     Route: 040
     Dates: start: 20120905
  3. TH-302 [Suspect]
     Indication: SARCOMA METASTATIC
     Dosage: Cyclic
     Dates: start: 20120705, end: 20120705
  4. TH-302 [Suspect]
     Dosage: 225 mg/m2 / 466 mg /Cycle #4/Day 8;
     Dates: start: 20120912
  5. DEXAMETHASONE [Suspect]
     Indication: PROPHYLAXIS OF NAUSEA AND VOMITING
     Route: 048
     Dates: start: 20120706
  6. CIPROFLOXACIN [Concomitant]
     Dates: start: 20120907, end: 20120916
  7. ASPIRIN [Concomitant]
     Dates: start: 20120615
  8. GENERIC LAXATIVE [Concomitant]
     Dates: start: 2010
  9. TYLENOL [Concomitant]
     Dates: start: 1992
  10. ALEVE [Concomitant]
     Dates: start: 20120705
  11. PROCHLORPERAZINE MALEATE [Concomitant]
     Dates: start: 20120705
  12. LORAZEPAM [Concomitant]
     Dates: start: 20120705
  13. LIDOCAINE [Concomitant]
     Dates: start: 20120705
  14. DEXAMETHASONE [Concomitant]
     Dates: start: 20120705
  15. FOSAPREPITANT [Concomitant]
     Dates: start: 20120705
  16. PALONOSETRON [Concomitant]
     Dates: start: 20120705
  17. ONDANSETRON [Concomitant]
     Dates: start: 20120711
  18. PREPERATION H [Concomitant]
     Dates: start: 20120705
  19. SUPPLEMENTAL OXYGEN [Concomitant]
  20. ICE PACK [Concomitant]
     Dates: start: 20120705
  21. ICE CHIPS [Concomitant]
     Dates: start: 20120705

REACTIONS (3)
  - Perirectal abscess [Recovered/Resolved]
  - Rectal fissure [Recovered/Resolved]
  - Pyrexia [Recovered/Resolved]
